FAERS Safety Report 6588390-5 (Version None)
Quarter: 2010Q1

REPORT INFORMATION
  Report Type: 
  Country: None (occurrence: None)
  Receive Date: 20100218
  Receipt Date: 20091116
  Transmission Date: 20100710
  Serious: Yes (Other)
  Sender: FDA-Public Use
  Company Number: US-ALLERGAN-0911754US

PATIENT
  Age: 64 Year
  Sex: Female
  Weight: 67.12 kg

DRUGS (5)
  1. BOTOX [Suspect]
     Indication: TORTICOLLIS
     Dosage: 250 UNITS, SINGLE
     Dates: start: 20090521, end: 20090521
  2. BOTOX [Suspect]
     Dosage: UNK
     Dates: start: 20090219, end: 20090219
  3. BOTOX [Suspect]
     Dosage: UNK
     Dates: start: 20080828, end: 20080828
  4. BOTOX [Suspect]
     Dosage: UNK
     Dates: start: 20080313, end: 20080313
  5. BOTOX [Suspect]
     Dosage: UNK
     Dates: start: 20071206, end: 20071206

REACTIONS (1)
  - MUSCULAR WEAKNESS [None]
